FAERS Safety Report 5350934-9 (Version None)
Quarter: 2007Q2

REPORT INFORMATION
  Report Type: 
  Country: None (occurrence: None)
  Receive Date: 20070608
  Receipt Date: 20070528
  Transmission Date: 20071010
  Serious: Yes (Other)
  Sender: FDA-Public Use
  Company Number: BR-JNJFOC-20070600541

PATIENT
  Age: 23 Year
  Sex: Male
  Weight: 64.85 kg

DRUGS (4)
  1. HALDOL [Suspect]
     Indication: NERVOUSNESS
     Route: 048
  2. HALDOL [Suspect]
     Indication: AGITATION
     Route: 048
  3. HALDOL [Suspect]
     Indication: DEPRESSION
     Route: 048
  4. VITASAY STRESS [Concomitant]

REACTIONS (2)
  - MUSCLE DISORDER [None]
  - WEIGHT INCREASED [None]
